FAERS Safety Report 8144114-1 (Version None)
Quarter: 2012Q1

REPORT INFORMATION
  Report Type: 
  Country: None (occurrence: None)
  Receive Date: 20120217
  Receipt Date: 20120210
  Transmission Date: 20120608
  Serious: Yes (Other)
  Sender: FDA-Public Use
  Company Number: US-JNJFOC-20110903287

PATIENT
  Sex: Male

DRUGS (13)
  1. ALLEGRA [Concomitant]
     Indication: HYPERSENSITIVITY
     Route: 065
  2. HYDROXYCHLOROQUINE SULFATE [Concomitant]
     Indication: INFECTION
     Route: 065
  3. FOLIC ACID [Concomitant]
     Indication: VITAMIN SUPPLEMENTATION
     Route: 065
  4. PRILOSEC [Concomitant]
     Indication: GASTROOESOPHAGEAL REFLUX DISEASE
     Route: 065
  5. VITAMIN [Concomitant]
     Indication: VITAMIN SUPPLEMENTATION
     Route: 065
  6. CALCIUM [Concomitant]
     Indication: MINERAL SUPPLEMENTATION
     Route: 065
  7. LEVAQUIN [Suspect]
     Indication: BACTERIAL INFECTION
     Route: 048
     Dates: start: 20080601
  8. LOPID [Concomitant]
     Indication: BLOOD CHOLESTEROL INCREASED
     Route: 065
  9. ZETIA [Concomitant]
     Indication: BLOOD CHOLESTEROL INCREASED
     Route: 065
  10. PREDNISONE TAB [Suspect]
     Indication: PRODUCT USED FOR UNKNOWN INDICATION
     Route: 065
  11. ASPIRIN [Concomitant]
     Indication: PAIN
     Route: 065
  12. LEVAQUIN [Suspect]
     Indication: STAPHYLOCOCCAL INFECTION
     Route: 048
     Dates: start: 20080601
  13. CELEBREX [Concomitant]
     Indication: ARTHRITIS
     Route: 065

REACTIONS (3)
  - INJURY [None]
  - ROTATOR CUFF SYNDROME [None]
  - TENDONITIS [None]
